FAERS Safety Report 15543690 (Version 1)
Quarter: 2018Q4

REPORT INFORMATION
  Report Type: Spontaneous
  Country: US (occurrence: US)
  Receive Date: 20181023
  Receipt Date: 20181023
  Transmission Date: 20190205
  Serious: Yes (Hospitalization, Other)
  Sender: FDA-Public Use
  Company Number: US-GLAXOSMITHKLINE-US2018189419

PATIENT
  Age: 65 Year
  Sex: Female

DRUGS (1)
  1. ADVAIR DISKUS [Suspect]
     Active Substance: FLUTICASONE PROPIONATE\SALMETEROL XINAFOATE
     Indication: PRODUCT USED FOR UNKNOWN INDICATION
     Dosage: 1 PUFF(S), BID
     Route: 055

REACTIONS (17)
  - Cardiac pacemaker insertion [Unknown]
  - Diplopia [Unknown]
  - Intentional product misuse [Unknown]
  - Endocrine ophthalmopathy [Unknown]
  - Bradycardia [Unknown]
  - Gait disturbance [Unknown]
  - Walking aid user [Unknown]
  - Intentional underdose [Unknown]
  - Arthropathy [Unknown]
  - Product dose omission [Unknown]
  - Optic nerve operation [Unknown]
  - Autoimmune thyroiditis [Unknown]
  - Bursitis [Unknown]
  - Basedow^s disease [Unknown]
  - Cardiac pacemaker replacement [Unknown]
  - Exophthalmos [Unknown]
  - Visual impairment [Unknown]

NARRATIVE: CASE EVENT DATE: 20080414
